FAERS Safety Report 19100418 (Version 1)
Quarter: 2021Q2

REPORT INFORMATION
  Report Type: Spontaneous
  Country: US (occurrence: US)
  Receive Date: 20210407
  Receipt Date: 20210407
  Transmission Date: 20210717
  Serious: Yes (Life-Threatening, Hospitalization, Other)
  Sender: FDA-Public Use
  Company Number: US-DRREDDYS-USA/USA/21/0133795

PATIENT
  Age: 58 Year
  Sex: Female

DRUGS (3)
  1. PROPOFOL INJECTABLE EMULSION [Suspect]
     Active Substance: PROPOFOL
  2. FENTANYL CITRATE. [Concomitant]
     Active Substance: FENTANYL CITRATE
     Indication: ANALGESIC THERAPY
  3. PROPOFOL INJECTABLE EMULSION [Suspect]
     Active Substance: PROPOFOL
     Indication: SEDATION

REACTIONS (1)
  - Propofol infusion syndrome [Recovered/Resolved]
